FAERS Safety Report 8244802-2 (Version None)
Quarter: 2012Q1

REPORT INFORMATION
  Report Type: 
  Country: None (occurrence: None)
  Receive Date: 20120329
  Receipt Date: 20110421
  Transmission Date: 20120608
  Serious: No
  Sender: FDA-Public Use
  Company Number: US-MYLANLABS-2011S1008439

PATIENT
  Sex: Female

DRUGS (2)
  1. FENTANYL-100 [Suspect]
     Dosage: CHANGED Q72H
     Route: 062
  2. FENTANYL-100 [Suspect]
     Indication: PAIN
     Dosage: CHANGED Q72H
     Route: 062

REACTIONS (3)
  - APPLICATION SITE PRURITUS [None]
  - APPLICATION SITE ULCER [None]
  - APPLICATION SITE ERYTHEMA [None]
